FAERS Safety Report 19764630 (Version 1)
Quarter: 2021Q3

REPORT INFORMATION
  Report Type: Spontaneous
  Country: TR (occurrence: TR)
  Receive Date: 20210830
  Receipt Date: 20210830
  Transmission Date: 20211014
  Serious: Yes (Hospitalization, Other)
  Sender: FDA-Public Use
  Company Number: TR-AMNEAL PHARMACEUTICALS-2021-AMRX-03552

PATIENT
  Age: 17 Year
  Sex: Male

DRUGS (2)
  1. METFORMIN HYDROCHLORIDE ER [Suspect]
     Active Substance: METFORMIN HYDROCHLORIDE
     Indication: PRODUCT USED FOR UNKNOWN INDICATION
     Dosage: UNK
     Route: 065
  2. INSULIN [Concomitant]
     Active Substance: INSULIN NOS
     Indication: TYPE 1 DIABETES MELLITUS
     Dosage: NOT USED INSULIN REGULARLY
     Route: 065

REACTIONS (8)
  - Leg amputation [Unknown]
  - Hyperkalaemia [Unknown]
  - Toxicity to various agents [Unknown]
  - Diabetic ketoacidotic hyperglycaemic coma [Unknown]
  - Multiple organ dysfunction syndrome [Unknown]
  - Intentional overdose [Unknown]
  - Cardiac arrest [Unknown]
  - Rhabdomyolysis [Unknown]
